FAERS Safety Report 11268886 (Version 1)
Quarter: 2015Q3

REPORT INFORMATION
  Report Type: Spontaneous
  Country: US (occurrence: None)
  Receive Date: 20150710
  Receipt Date: 20150710
  Transmission Date: 20151125
  Serious: Yes (Hospitalization)
  Sender: FDA-Public Use
  Company Number: 15US007019

PATIENT
  Age: 39 Year
  Sex: Female
  Weight: 70.3 kg

DRUGS (12)
  1. INSULIN [Concomitant]
     Active Substance: INSULIN NOS
  2. PLACEBO [Suspect]
     Active Substance: UNSPECIFIED INGREDIENT
     Indication: ROSACEA
     Route: 061
     Dates: start: 20150611
  3. LEVEMIR (INSULIN DETERMIR) [Concomitant]
  4. HYDROCODONE W/APAP (HYDROCODONE BITARTRATE, PARACETAMOL) [Concomitant]
  5. BRIMONIDINE 0.33% GEL [Suspect]
     Active Substance: BRIMONIDINE TARTRATE
     Indication: ROSACEA
     Dosage: 1 APPLICATION, QD, TOPICAL
     Route: 061
     Dates: start: 20150611
  6. HUMALOG [Concomitant]
     Active Substance: INSULIN LISPRO
  7. LANTUS [Concomitant]
     Active Substance: INSULIN GLARGINE
  8. FARXIGA [Suspect]
     Active Substance: DAPAGLIFLOZIN PROPANEDIOL
     Indication: DIABETES MELLITUS
     Route: 048
     Dates: start: 201407, end: 20150615
  9. ACETAMINOPHEN (PARACETAMOL) [Concomitant]
     Active Substance: ACETAMINOPHEN
  10. LIPITOR [Concomitant]
     Active Substance: ATORVASTATIN CALCIUM
  11. LISPRO  INSULIN (INSULIN LISPRO) [Concomitant]
  12. MIRVASO [Suspect]
     Active Substance: BRIMONIDINE TARTRATE
     Indication: ROSACEA
     Route: 061
     Dates: start: 20150611

REACTIONS (1)
  - Diabetic ketoacidosis [None]

NARRATIVE: CASE EVENT DATE: 20150615
